FAERS Safety Report 8341015-0 (Version None)
Quarter: 2012Q1

REPORT INFORMATION
  Report Type: 
  Country: None (occurrence: None)
  Receive Date: 20120330
  Receipt Date: 20110225
  Transmission Date: 20120608
  Serious: Yes (Other)
  Sender: FDA-Public Use
  Company Number: PHHY2011US16989

PATIENT
  Age: 77 Year
  Sex: Female

DRUGS (8)
  1. LOVASTATIN [Concomitant]
  2. VERAPAMIL [Concomitant]
  3. MECLIZINE [Concomitant]
  4. SERTRALINE HCO (SERTRALINE) TAPE (INCLUDING POULTICE) [Concomitant]
  5. DIOVAN HCT [Concomitant]
  6. RIVASTIGMINE [Suspect]
     Dosage: 4.5 MG, QD, ORAL
     Route: 048
  7. MECLIZINE [Concomitant]
  8. TIMOLOL MALEATE (TIMOLOL MALEATE) SOLUTION, 0.5 % [Concomitant]

REACTIONS (3)
  - VOMITING [None]
  - DIARRHOEA [None]
  - DEHYDRATION [None]
